FAERS Safety Report 5075253-X (Version None)
Quarter: 2006Q3

REPORT INFORMATION
  Report Type: 
  Country: None (occurrence: None)
  Receive Date: 20060803
  Receipt Date: 20060803
  Transmission Date: 20061208
  Serious: Yes (Other)
  Sender: FDA-Public Use
  Company Number: None

PATIENT
  Sex: Female
  Weight: 72.5755 kg

DRUGS (3)
  1. AUGMENTIN [Suspect]
     Indication: ASTHMA
     Dosage: ONE TABLES 2 TIMES/DAYS PO
     Route: 048
     Dates: start: 20060707, end: 20060716
  2. AUGMENTIN [Suspect]
     Indication: BRONCHITIS
     Dosage: ONE TABLES 2 TIMES/DAYS PO
     Route: 048
     Dates: start: 20060707, end: 20060716
  3. AUGMENTIN [Suspect]
     Indication: PNEUMONIA
     Dosage: ONE TABLES 2 TIMES/DAYS PO
     Route: 048
     Dates: start: 20060707, end: 20060716

REACTIONS (2)
  - CLOSTRIDIUM DIFFICILE COLITIS [None]
  - THERAPY NON-RESPONDER [None]
